FAERS Safety Report 26099616 (Version 2)
Quarter: 2025Q4

REPORT INFORMATION
  Report Type: Report from Study
  Country: MX (occurrence: MX)
  Receive Date: 20251128
  Receipt Date: 20251227
  Transmission Date: 20260117
  Serious: Yes (Hospitalization, Other)
  Sender: ALEXION PHARMACEUTICALS
  Company Number: MX-AstraZeneca-CH-01000649A

PATIENT
  Age: 58 Year
  Sex: Female
  Weight: 75 kg

DRUGS (2)
  1. BUDESONIDE\FORMOTEROL\GLYCOPYRRONIUM [Suspect]
     Active Substance: BUDESONIDE\FORMOTEROL\GLYCOPYRRONIUM
     Indication: Chronic obstructive pulmonary disease
     Dosage: 4 DOSAGE FORM, QD
     Dates: start: 2024
  2. DOSTEIN [Concomitant]
     Route: 065

REACTIONS (8)
  - Breast cancer female [Recovering/Resolving]
  - Respiratory distress [Unknown]
  - Pain [Unknown]
  - Insomnia [Unknown]
  - Product dose omission in error [Unknown]
  - Weight decreased [Unknown]
  - Apathy [Unknown]
  - Polydipsia [Unknown]

NARRATIVE: CASE EVENT DATE: 20250901
